FAERS Safety Report 5045135-8 (Version None)
Quarter: 2006Q3

REPORT INFORMATION
  Report Type: 
  Country: None (occurrence: None)
  Receive Date: 20060707
  Receipt Date: 20060628
  Transmission Date: 20061208
  Serious: Yes (Hospitalization)
  Sender: FDA-Public Use
  Company Number: JP-SANOFI-SYNTHELABO-A01200605171

PATIENT
  Sex: Female
  Weight: 47 kg

DRUGS (9)
  1. HALOPERIDOL [Concomitant]
     Route: 042
     Dates: start: 20060215, end: 20060219
  2. AZASETRON HYDROCHLORIDE [Concomitant]
     Route: 042
     Dates: start: 20060215, end: 20060219
  3. METOCLOPRAMIDE [Concomitant]
     Route: 042
     Dates: start: 20060215, end: 20060219
  4. DEXAMETHASONE TAB [Concomitant]
     Route: 040
     Dates: start: 20060215, end: 20060219
  5. ONDANSETRON HCL [Concomitant]
     Route: 042
     Dates: start: 20060215, end: 20060607
  6. FLUOROURACIL [Suspect]
     Indication: LARGE INTESTINE CARCINOMA
     Route: 040
     Dates: start: 20060215
  7. FLUOROURACIL [Suspect]
     Route: 042
     Dates: start: 20060215
  8. CALCIUM LEVOFOLINATE [Suspect]
     Indication: LARGE INTESTINE CARCINOMA
     Route: 042
     Dates: start: 20060215
  9. OXALIPLATIN [Suspect]
     Indication: LARGE INTESTINE CARCINOMA
     Route: 042
     Dates: start: 20060215, end: 20060215

REACTIONS (2)
  - HYPERKALAEMIA [None]
  - RENAL DISORDER [None]
